FAERS Safety Report 14316584 (Version 2)
Quarter: 2018Q1

REPORT INFORMATION
  Report Type: Spontaneous
  Country: US (occurrence: US)
  Receive Date: 20171222
  Receipt Date: 20180104
  Transmission Date: 20180509
  Serious: No
  Sender: FDA-Public Use
  Company Number: US-009507513-1712USA006624

PATIENT
  Sex: Male

DRUGS (3)
  1. SYLATRON [Suspect]
     Active Substance: PEGINTERFERON ALFA-2B
     Indication: MALIGNANT MELANOMA
     Dosage: INJECT 200 MICROGRAM, EVERY WEEK
     Route: 058
     Dates: start: 20160728
  2. VITAMINS (UNSPECIFIED) [Concomitant]
     Active Substance: VITAMINS
  3. NICOTINE POLACRILEX [Concomitant]
     Active Substance: NICOTINE

REACTIONS (7)
  - Fatigue [Unknown]
  - Poor quality sleep [Unknown]
  - Depression [Unknown]
  - Memory impairment [Unknown]
  - Anxiety [Unknown]
  - Disturbance in attention [Unknown]
  - Irritability [Unknown]
